FAERS Safety Report 4601428-7 (Version None)
Quarter: 2005Q2

REPORT INFORMATION
  Report Type: 
  Country: None (occurrence: None)
  Receive Date: 20050204
  Receipt Date: 20041028
  Transmission Date: 20051028
  Serious: Yes (Hospitalization, Other)
  Sender: FDA-Public Use
  Company Number: USA040670201

PATIENT
  Age: 76 Year
  Sex: Female
  Weight: 49 kg

DRUGS (10)
  1. FORTEO [Suspect]
     Indication: OSTEOPOROSIS
     Dosage: 20 UG/1 DAY
     Dates: start: 20020101
  2. EVISTA [Suspect]
     Indication: OSTEOPOROSIS
     Dates: start: 20020401, end: 20020501
  3. ACTOS [Concomitant]
  4. AGGRENOX [Concomitant]
  5. PLAQUENIL [Concomitant]
  6. PREDNISONE [Concomitant]
  7. INDERAL [Concomitant]
  8. MULTI-VITAMIN [Concomitant]
  9. VITAMIN B-12 [Concomitant]
  10. CALCIUM WITH VITAMIN D [Concomitant]

REACTIONS (10)
  - ABDOMINAL PAIN UPPER [None]
  - AMMONIA INCREASED [None]
  - ASTHENIA [None]
  - BLOOD MAGNESIUM DECREASED [None]
  - BLOOD PHOSPHORUS DECREASED [None]
  - COMA [None]
  - DIZZINESS [None]
  - FATIGUE [None]
  - RASH GENERALISED [None]
  - SLEEP DISORDER [None]
